FAERS Safety Report 4355201-8 (Version None)
Quarter: 2004Q2

REPORT INFORMATION
  Report Type: 
  Country: None (occurrence: None)
  Receive Date: 20040504
  Receipt Date: 20040209
  Transmission Date: 20050107
  Serious: Yes (Life-Threatening, Hospitalization, Disabling)
  Sender: FDA-Public Use
  Company Number: FABR-10472

PATIENT
  Age: 34 Year
  Sex: Male
  Weight: 68 kg

DRUGS (5)
  1. FABRAZYME [Suspect]
     Indication: FABRY'S DISEASE
     Dosage: 0.2 MG/KG Q2WKS IV
     Route: 042
     Dates: start: 20030212, end: 20031015
  2. FABRAZYME [Suspect]
     Indication: FABRY'S DISEASE
     Dosage: 0.4 MG/KG Q2WKS IV
     Route: 042
     Dates: start: 20031015, end: 20031029
  3. FABRAZYME [Suspect]
     Indication: FABRY'S DISEASE
     Dosage: 1 MG/KG Q2WKS IV
     Route: 042
     Dates: start: 20031029
  4. NITRAZEPAM [Concomitant]
  5. ESCITALOPRAM [Concomitant]

REACTIONS (8)
  - AZOTAEMIA [None]
  - COMA [None]
  - CONVULSION [None]
  - DEPRESSION [None]
  - DIALYSIS [None]
  - DISEASE PROGRESSION [None]
  - RENAL FAILURE [None]
  - VOMITING [None]
